FAERS Safety Report 10155395 (Version 1)
Quarter: 2014Q2

REPORT INFORMATION
  Report Type: Spontaneous
  Country: AU (occurrence: AU)
  Receive Date: 20140506
  Receipt Date: 20140506
  Transmission Date: 20141212
  Serious: Yes (Life-Threatening, Hospitalization, Other)
  Sender: FDA-Public Use
  Company Number: PHHY2014AU052885

PATIENT
  Age: 68 Year
  Sex: Female

DRUGS (3)
  1. BUDESONIDE [Suspect]
     Indication: ASTHMA
  2. SALBUTAMOL [Suspect]
     Indication: ASTHMA
     Route: 055
  3. IPRATROPIUM [Suspect]
     Indication: ASTHMA
     Route: 055

REACTIONS (6)
  - Bronchospasm paradoxical [Unknown]
  - Respiratory distress [Recovered/Resolved]
  - Asthma [Recovering/Resolving]
  - Dyspnoea [Recovered/Resolved]
  - Cardiac arrest [Unknown]
  - Drug resistance [Unknown]
